FAERS Safety Report 9555982 (Version 1)
Quarter: 2013Q3

REPORT INFORMATION
  Report Type: Spontaneous
  Country: JP (occurrence: None)
  Receive Date: 20130924
  Receipt Date: 20130924
  Transmission Date: 20140515
  Serious: Yes (Hospitalization)
  Sender: FDA-Public Use
  Company Number: B0924412A

PATIENT
  Age: 10 Year
  Sex: Female

DRUGS (1)
  1. ZANAMIVIR [Suspect]
     Indication: INFLUENZA
     Route: 055

REACTIONS (4)
  - Shock [None]
  - Loss of consciousness [None]
  - Pericardial effusion [None]
  - Pulse absent [None]
